FAERS Safety Report 12667935 (Version 2)
Quarter: 2016Q3

REPORT INFORMATION
  Report Type: Report from Study
  Country: IN (occurrence: IN)
  Receive Date: 20160819
  Receipt Date: 20160906
  Transmission Date: 20161109
  Serious: Yes (Death, Life-Threatening, Other)
  Sender: FDA-Public Use
  Company Number: IN-SA-2016SA152320

PATIENT
  Age: 4 Year
  Sex: Male

DRUGS (12)
  1. FLUDARABINE PHOSPHATE. [Suspect]
     Active Substance: FLUDARABINE PHOSPHATE
     Indication: BONE MARROW CONDITIONING REGIMEN
     Dosage: FOR 5 DAYS FROM DAY 6
     Route: 065
  2. URSODEOXYCHOLIC ACID [Concomitant]
     Active Substance: URSODIOL
     Dosage: THREE DIVIDED DOSES WAS STARTED FROM DAY 7 AND CONTINUED FOR 30 DAYS POST-TRANSPLANT
  3. CICLOSPORIN [Suspect]
     Active Substance: CYCLOSPORINE
     Indication: PROPHYLAXIS AGAINST GRAFT VERSUS HOST DISEASE
     Route: 042
  4. LEVETIRACETAM. [Concomitant]
     Active Substance: LEVETIRACETAM
  5. BUSULFAN. [Suspect]
     Active Substance: BUSULFAN
     Indication: BONE MARROW CONDITIONING REGIMEN
     Dosage: FOR 12 DOSES
     Route: 065
  6. ACYCLOVIR. [Concomitant]
     Active Substance: ACYCLOVIR
  7. CYCLOPHOSPHAMIDE. [Suspect]
     Active Substance: CYCLOPHOSPHAMIDE
     Indication: PROPHYLAXIS AGAINST GRAFT VERSUS HOST DISEASE
     Dosage: ON DAYS 3 AND 4
     Route: 065
  8. FLUDARABINE PHOSPHATE. [Suspect]
     Active Substance: FLUDARABINE PHOSPHATE
     Indication: ACUTE LYMPHOCYTIC LEUKAEMIA
     Dosage: FOR 5 DAYS FROM DAY 6
     Route: 065
  9. MYCOPHENOLATE MOFETIL. [Suspect]
     Active Substance: MYCOPHENOLATE MOFETIL
     Indication: PROPHYLAXIS AGAINST GRAFT VERSUS HOST DISEASE
     Dosage: IN ORAL SUSPENSION OR TABLET FORM
     Route: 048
  10. MELPHALAN [Suspect]
     Active Substance: MELPHALAN
     Indication: BONE MARROW CONDITIONING REGIMEN
     Dosage: ON DAY 1
     Route: 065
  11. BUSULFAN. [Suspect]
     Active Substance: BUSULFAN
     Indication: ACUTE LYMPHOCYTIC LEUKAEMIA
     Dosage: FOR 12 DOSES
     Route: 065
  12. MELPHALAN [Suspect]
     Active Substance: MELPHALAN
     Indication: ACUTE LYMPHOCYTIC LEUKAEMIA
     Dosage: ON DAY 1
     Route: 065

REACTIONS (6)
  - Cytomegalovirus infection [Unknown]
  - Bacterial infection [Fatal]
  - Acute graft versus host disease [Unknown]
  - Rotavirus infection [Unknown]
  - Histiocytosis haematophagic [Fatal]
  - Drug ineffective [Unknown]
